FAERS Safety Report 23346467 (Version 1)
Quarter: 2023Q4

REPORT INFORMATION
  Report Type: Spontaneous
  Country: GB (occurrence: GB)
  Receive Date: 20231228
  Receipt Date: 20231228
  Transmission Date: 20240110
  Serious: Yes (Other)
  Sender: FDA-Public Use
  Company Number: GB-MHRA-TPP33647805C10503574YC1681762079265

PATIENT
  Age: 37 Year
  Sex: Male
  Weight: 76 kg

DRUGS (2)
  1. CODEINE [Suspect]
     Active Substance: CODEINE
     Indication: Product used for unknown indication
     Dosage: 30 MILLIGRAM, UNK
     Route: 065
     Dates: start: 20230414
  2. AMOXICILLIN\CLAVULANATE POTASSIUM [Concomitant]
     Active Substance: AMOXICILLIN\CLAVULANATE POTASSIUM
     Indication: Product used for unknown indication
     Dosage: FOR 7 DAYS ( ADULT)
     Route: 065
     Dates: start: 20230411

REACTIONS (3)
  - Swelling face [Recovered/Resolved]
  - Nausea [Unknown]
  - Rash [Unknown]

NARRATIVE: CASE EVENT DATE: 20230414
